FAERS Safety Report 23376909 (Version 4)
Quarter: 2024Q2

REPORT INFORMATION
  Report Type: Report from Study
  Country: US (occurrence: US)
  Receive Date: 20240108
  Receipt Date: 20240410
  Transmission Date: 20240716
  Serious: Yes (Other)
  Sender: FDA-Public Use
  Company Number: US-drreddys-CLI/USA/23/0180629

PATIENT
  Age: 37 Year
  Sex: Female

DRUGS (1)
  1. ZENATANE [Suspect]
     Active Substance: ISOTRETINOIN
     Indication: Product used for unknown indication
     Dosage: RMS ISSUE DATE: 16 MARCH 2023 01:47:33 PM, 18 MAY 2023 02:53:25 PM
     Dates: start: 20230316, end: 20231017

REACTIONS (6)
  - Exposure during pregnancy [Unknown]
  - Xerosis [Unknown]
  - Adverse event [Recovered/Resolved]
  - Dry skin [Recovered/Resolved]
  - Rash [Recovered/Resolved]
  - Headache [Unknown]

NARRATIVE: CASE EVENT DATE: 20230401
